FAERS Safety Report 5742530-6 (Version None)
Quarter: 2008Q2

REPORT INFORMATION
  Report Type: 
  Country: None (occurrence: None)
  Receive Date: 20080519
  Receipt Date: 20080505
  Transmission Date: 20081010
  Serious: Yes (Hospitalization, Other)
  Sender: FDA-Public Use
  Company Number: AU-ELI_LILLY_AND_COMPANY-AU200805000754

PATIENT
  Sex: Male
  Weight: 52 kg

DRUGS (1)
  1. ATOMOXETINE HCL [Suspect]
     Indication: ATTENTION DEFICIT/HYPERACTIVITY DISORDER
     Dosage: 62.4 MG(1.2MG/KG), UNKNOWN
     Route: 065
     Dates: start: 20080425, end: 20080426

REACTIONS (2)
  - HAEMATEMESIS [None]
  - MALLORY-WEISS SYNDROME [None]
